FAERS Safety Report 16031755 (Version 1)
Quarter: 2019Q1

REPORT INFORMATION
  Report Type: Spontaneous
  Country: IT (occurrence: IT)
  Receive Date: 20190304
  Receipt Date: 20190304
  Transmission Date: 20190418
  Serious: Yes (Other)
  Sender: FDA-Public Use
  Company Number: IT-PFIZER INC-2019090766

PATIENT
  Age: 65 Year
  Sex: Male
  Weight: 110 kg

DRUGS (4)
  1. MERREM [Suspect]
     Active Substance: MEROPENEM
     Dosage: 6 G, 1X/DAY
     Route: 042
     Dates: start: 20190116
  2. FENITOINA ACCORD [Interacting]
     Active Substance: PHENYTOIN SODIUM
     Dosage: 1000 MG, 1X/DAY
     Route: 042
     Dates: start: 20190110
  3. AMBISOME [Interacting]
     Active Substance: AMPHOTERICIN B
     Dosage: 400 MG, 1X/DAY
     Route: 042
     Dates: start: 20190122
  4. KEPPRA [Concomitant]
     Active Substance: LEVETIRACETAM
     Dosage: 3 G, UNK
     Route: 048

REACTIONS (2)
  - Rash generalised [Not Recovered/Not Resolved]
  - Drug interaction [Not Recovered/Not Resolved]

NARRATIVE: CASE EVENT DATE: 20190129
